FAERS Safety Report 9528245 (Version 1)
Quarter: 2013Q1

REPORT INFORMATION
  Report Type: Spontaneous
  Country: US (occurrence: None)
  Receive Date: 20130322
  Receipt Date: 20130322
  Transmission Date: 20140127
  Serious: Yes (Other)
  Sender: FDA-Public Use
  Company Number: PHEH2012US003239

PATIENT
  Age: 62 Year
  Sex: Male

DRUGS (1)
  1. NEORAL [Suspect]
     Indication: RENAL TRANSPLANT
     Dosage: 100 MG EVERY MORNING
     Route: 048
     Dates: start: 20110824, end: 20120101

REACTIONS (1)
  - Toxicity to various agents [None]
